APPROVED DRUG PRODUCT: CARIPRAZINE HYDROCHLORIDE
Active Ingredient: CARIPRAZINE HYDROCHLORIDE
Strength: EQ 3MG BASE
Dosage Form/Route: CAPSULE;ORAL
Application: A213984 | Product #002
Applicant: ZYDUS WORLDWIDE DMCC
Approved: Sep 9, 2022 | RLD: No | RS: No | Type: DISCN